FAERS Safety Report 18291903 (Version 1)
Quarter: 2020Q3

REPORT INFORMATION
  Report Type: Spontaneous
  Country: US (occurrence: US)
  Receive Date: 20200921
  Receipt Date: 20200921
  Transmission Date: 20201103
  Serious: Yes (Other)
  Sender: FDA-Public Use
  Company Number: US-NOVOPROD-753775

PATIENT
  Sex: Female

DRUGS (1)
  1. NOVOLOG MIX 70/30 [Suspect]
     Active Substance: INSULIN ASPART
     Indication: TYPE 2 DIABETES MELLITUS
     Dosage: 60 IU, QD (40 UNITS IN AM, 20 UNITS IN PM)
     Route: 058
     Dates: end: 20200902

REACTIONS (5)
  - Gastritis [Recovered/Resolved]
  - Weight decreased [Unknown]
  - Vomiting [Unknown]
  - Hepatic cirrhosis [Not Recovered/Not Resolved]
  - Asthma [Unknown]

NARRATIVE: CASE EVENT DATE: 2016
